FAERS Safety Report 5824739-6 (Version None)
Quarter: 2008Q3

REPORT INFORMATION
  Report Type: 
  Country: None (occurrence: None)
  Receive Date: 20080728
  Receipt Date: 20080723
  Transmission Date: 20090109
  Serious: Yes (Death, Hospitalization)
  Sender: FDA-Public Use
  Company Number: JP-WYE-H04526208

PATIENT
  Sex: Male

DRUGS (8)
  1. HYPEN [Suspect]
     Indication: SPINAL OSTEOARTHRITIS
     Route: 048
     Dates: start: 20061216
  2. IRSOGLADINE MALEATE [Concomitant]
     Indication: GASTRITIS
     Dosage: UNKNOWN
     Route: 048
     Dates: start: 20070825
  3. BETAMETHASONE/DEXCHLORPHENIRAMINE MALEATE [Concomitant]
     Dosage: UNKNOWN
     Route: 048
     Dates: start: 20070825
  4. LIMAPROST [Concomitant]
     Dosage: UNKNOWN
     Route: 048
     Dates: start: 20070825
  5. BETAMETHASONE [Concomitant]
     Dosage: UNKNOWN
     Route: 048
     Dates: start: 20070825
  6. BETAMETHASONE [Concomitant]
     Dosage: UNKNOWN
     Route: 048
     Dates: start: 20070908
  7. DICLOFENAC SODIUM [Suspect]
     Indication: SPINAL OSTEOARTHRITIS
     Route: 054
     Dates: start: 20070908
  8. MECOBALAMIN [Concomitant]
     Dosage: UNKNOWN
     Route: 048
     Dates: start: 20070825

REACTIONS (5)
  - ABSCESS [None]
  - ANOREXIA [None]
  - GASTRIC PERFORATION [None]
  - GASTRIC ULCER [None]
  - PERITONITIS [None]
